FAERS Safety Report 10148354 (Version 2)
Quarter: 2014Q2

REPORT INFORMATION
  Report Type: Spontaneous
  Country: US (occurrence: US)
  Receive Date: 20140501
  Receipt Date: 20140602
  Transmission Date: 20141212
  Serious: No
  Sender: FDA-Public Use
  Company Number: US-AMGEN-USASP2014029581

PATIENT
  Age: 57 Year
  Sex: Male

DRUGS (5)
  1. ENBREL [Suspect]
     Indication: PSORIATIC ARTHROPATHY
     Dosage: 50 MG, QWK
     Route: 065
     Dates: start: 20140414
  2. ENBREL [Suspect]
  3. ENBREL [Suspect]
  4. ENBREL [Suspect]
  5. ENBREL [Suspect]

REACTIONS (3)
  - Pruritus [Not Recovered/Not Resolved]
  - Injection site discomfort [Recovered/Resolved]
  - Injection site pruritus [Not Recovered/Not Resolved]
